FAERS Safety Report 26037997 (Version 2)
Quarter: 2025Q4

REPORT INFORMATION
  Report Type: Report from Study
  Country: US (occurrence: US)
  Receive Date: 20251112
  Receipt Date: 20251202
  Transmission Date: 20260117
  Serious: Yes (Other)
  Sender: ABBVIE
  Company Number: US-ABBVIE-6539689

PATIENT
  Age: 89 Year
  Sex: Female

DRUGS (1)
  1. HUMIRA [Suspect]
     Active Substance: ADALIMUMAB
     Indication: Rheumatoid arthritis
     Dosage: 40MG/0.4ML
     Route: 058
     Dates: start: 2002

REACTIONS (3)
  - Dry age-related macular degeneration [Not Recovered/Not Resolved]
  - Glaucoma [Unknown]
  - Neovascular age-related macular degeneration [Not Recovered/Not Resolved]
